FAERS Safety Report 8054507-9 (Version None)
Quarter: 2012Q1

REPORT INFORMATION
  Report Type: 
  Country: None (occurrence: None)
  Receive Date: 20120118
  Receipt Date: 20120112
  Transmission Date: 20120608
  Serious: Yes (Other)
  Sender: FDA-Public Use
  Company Number: US-ROCHE-786668

PATIENT
  Sex: Male
  Weight: 83.99 kg

DRUGS (2)
  1. AMNESTEEM [Suspect]
     Indication: ACNE
     Route: 065
  2. ACCUTANE [Suspect]
     Indication: ACNE
     Route: 065
     Dates: start: 20040217, end: 20041118

REACTIONS (13)
  - BLOOD CHOLESTEROL INCREASED [None]
  - DRY SKIN [None]
  - INFLAMMATORY BOWEL DISEASE [None]
  - LIP DRY [None]
  - MUSCLE TIGHTNESS [None]
  - DEPRESSION [None]
  - NECK PAIN [None]
  - ERYTHEMA [None]
  - COLITIS ULCERATIVE [None]
  - BLOOD TRIGLYCERIDES INCREASED [None]
  - COLONIC POLYP [None]
  - SUICIDAL IDEATION [None]
  - SUICIDE ATTEMPT [None]
